FAERS Safety Report 14247912 (Version 3)
Quarter: 2018Q1

REPORT INFORMATION
  Report Type: Spontaneous
  Country: JP (occurrence: JP)
  Receive Date: 20171204
  Receipt Date: 20180214
  Transmission Date: 20180508
  Serious: Yes (Hospitalization, Other)
  Sender: FDA-Public Use
  Company Number: JP-GLAXOSMITHKLINE-JP2017JPN182756

PATIENT
  Age: 81 Year
  Sex: Male
  Weight: 55 kg

DRUGS (4)
  1. CASODEX [Concomitant]
     Active Substance: BICALUTAMIDE
     Indication: PROSTATE CANCER
     Dosage: 80 MG, 1D
     Dates: start: 20170719
  2. VALTREX [Suspect]
     Active Substance: VALACYCLOVIR HYDROCHLORIDE
     Indication: HERPES ZOSTER
     Dosage: 3000 MG, 1D
     Route: 048
     Dates: start: 20171120, end: 20171126
  3. LOSARTAN POTASSIUM. [Suspect]
     Active Substance: LOSARTAN POTASSIUM
     Indication: HYPERTENSION
     Dosage: 50 MG, 1D
     Route: 048
     Dates: end: 20171129
  4. LOXONIN TABLETS 60MG [Suspect]
     Active Substance: LOXOPROFEN
     Indication: ANALGESIC THERAPY
     Dosage: 180 MG, 1D
     Route: 048
     Dates: start: 20171120, end: 20171129

REACTIONS (8)
  - Toxic encephalopathy [Recovering/Resolving]
  - Dysarthria [Recovered/Resolved]
  - Dyslalia [Recovered/Resolved]
  - Dehydration [Unknown]
  - Altered state of consciousness [Recovered/Resolved]
  - Decreased appetite [Unknown]
  - Drug level increased [Unknown]
  - Renal impairment [Recovered/Resolved]

NARRATIVE: CASE EVENT DATE: 20171124
